FAERS Safety Report 13864857 (Version 1)
Quarter: 2017Q3

REPORT INFORMATION
  Report Type: Report from Study
  Country: US (occurrence: US)
  Receive Date: 20170814
  Receipt Date: 20170814
  Transmission Date: 20171127
  Serious: Yes (Hospitalization)
  Sender: FDA-Public Use
  Company Number: US-ASTRAZENECA-2017SE82133

PATIENT
  Age: 13593 Day
  Sex: Female
  Weight: 86.1 kg

DRUGS (3)
  1. MEDI4736 (MEDI4736) [Suspect]
     Active Substance: DURVALUMAB
     Indication: CERVIX CARCINOMA
     Dosage: Q2W IN REPEATING 8-WEEK CYCLES AT 10 MG/KG IN 250 ML INFUSED OVER 60 MINUTES.
     Route: 042
     Dates: start: 20170607
  2. LEVEMIR [Concomitant]
     Active Substance: INSULIN DETEMIR
     Route: 065
     Dates: start: 20170602
  3. NOVOLOG [Concomitant]
     Active Substance: INSULIN ASPART
     Route: 065
     Dates: start: 20170602

REACTIONS (1)
  - Diabetic ketoacidosis [Recovered/Resolved]

NARRATIVE: CASE EVENT DATE: 20170801
